FAERS Safety Report 7396443-7 (Version None)
Quarter: 2011Q2

REPORT INFORMATION
  Report Type: 
  Country: None (occurrence: None)
  Receive Date: 20110406
  Receipt Date: 20101011
  Transmission Date: 20111010
  Serious: Yes (Life-Threatening, Other)
  Sender: FDA-Public Use
  Company Number: US-BAYER-201021613NA

PATIENT
  Sex: Female
  Weight: 103.4 kg

DRUGS (23)
  1. YASMIN [Suspect]
     Indication: PELVIC PAIN
  2. TYLENOL W/ CODEINE NO. 3 [Concomitant]
     Dates: start: 20040101, end: 20050101
  3. ORTHO NOVIN [Concomitant]
     Indication: OVARIAN CYST
     Dosage: UNK
     Dates: start: 20091007
  4. HYDROCODONE [HYDROCODONE] [Concomitant]
     Dosage: UNK
     Dates: start: 20090101
  5. SEASONALE [Concomitant]
     Indication: MIGRAINE
     Dosage: UNK
     Dates: start: 20050728
  6. PHENERGAN HCL [Concomitant]
     Dosage: UNK
     Dates: start: 20090101
  7. REGLAN [Concomitant]
     Dosage: UNK
     Dates: start: 20090101
  8. TOPAMAX [Concomitant]
     Dates: start: 20040101, end: 20050615
  9. RANITIDINE [Concomitant]
  10. LOESTRIN 1.5/30 [Concomitant]
     Dosage: UNK
     Dates: start: 20070601, end: 20070901
  11. NEXIUM [Concomitant]
     Dosage: UNK
     Dates: start: 20090101
  12. OCELLA [Suspect]
     Dates: start: 20090310, end: 20100215
  13. PHENERGAN HCL [Concomitant]
     Dates: start: 20040101, end: 20050615
  14. ZANTAC [Concomitant]
  15. MICROGESTIN 1.5/30 [Concomitant]
     Dosage: UNK
     Dates: start: 20071001, end: 20071101
  16. NAPROXEN [Concomitant]
     Dates: start: 20040101, end: 20050615
  17. ORTHO NOVIN [Concomitant]
     Indication: ADVERSE EVENT
     Dosage: UNK
     Dates: start: 20100311
  18. DARVOCET [Concomitant]
  19. PANADEINE CO [Concomitant]
     Dates: start: 20040101, end: 20050615
  20. PROPOXYPHENE HYDROCHLORIDE [Concomitant]
  21. YAZ [Suspect]
     Indication: PRODUCT USED FOR UNKNOWN INDICATION
     Dosage: AS USED DOSE: UNK
     Route: 048
  22. YASMIN [Suspect]
     Indication: MENSTRUATION IRREGULAR
     Dosage: AS USED DOSE: UNK
     Route: 048
     Dates: start: 20080101, end: 20090915
  23. LOESTRIN FE 1/20 [Concomitant]
     Indication: MENSTRUATION IRREGULAR
     Dosage: UNK
     Dates: start: 20070627

REACTIONS (12)
  - ABDOMINAL PAIN UPPER [None]
  - DEEP VEIN THROMBOSIS [None]
  - VOMITING [None]
  - GALLBLADDER NON-FUNCTIONING [None]
  - PAIN [None]
  - PULMONARY EMBOLISM [None]
  - GALLBLADDER CHOLESTEROLOSIS [None]
  - DIARRHOEA [None]
  - APPENDICITIS PERFORATED [None]
  - CHOLECYSTITIS CHRONIC [None]
  - NAUSEA [None]
  - PYREXIA [None]
